FAERS Safety Report 24716181 (Version 2)
Quarter: 2025Q2

REPORT INFORMATION
  Report Type: Report from Study
  Country: CA (occurrence: CA)
  Receive Date: 20241210
  Receipt Date: 20250505
  Transmission Date: 20250716
  Serious: Yes (Other)
  Sender: TAKEDA
  Company Number: CA-TAKEDA-2024TUS121570

PATIENT
  Age: 68 Year
  Sex: Female

DRUGS (5)
  1. VEDOLIZUMAB [Suspect]
     Active Substance: VEDOLIZUMAB
     Indication: Crohn^s disease
  2. VEDOLIZUMAB [Suspect]
     Active Substance: VEDOLIZUMAB
  3. BUDESONIDE [Concomitant]
     Active Substance: BUDESONIDE
  4. PROLIA [Concomitant]
     Active Substance: DENOSUMAB
  5. TRIAMCINOLONE ACETONIDE [Concomitant]
     Active Substance: TRIAMCINOLONE ACETONIDE

REACTIONS (2)
  - Alopecia [Unknown]
  - Haematochezia [Unknown]

NARRATIVE: CASE EVENT DATE: 20241108
